FAERS Safety Report 7950529-4 (Version None)
Quarter: 2011Q4

REPORT INFORMATION
  Report Type: 
  Country: None (occurrence: None)
  Receive Date: 20111130
  Receipt Date: 20111117
  Transmission Date: 20120403
  Serious: Yes (Other)
  Sender: FDA-Public Use
  Company Number: ES-ROCHE-1014423

PATIENT
  Age: 25 Year
  Sex: Male

DRUGS (4)
  1. PIPERACILLIN AND TAZOBACTAM [Concomitant]
     Indication: PYREXIA
     Route: 051
  2. TRETINOIN [Suspect]
     Indication: ACUTE PROMYELOCYTIC LEUKAEMIA
     Route: 065
  3. IDARUBICIN HCL [Concomitant]
     Indication: ACUTE PROMYELOCYTIC LEUKAEMIA
     Dosage: ON DAYS 2, 4, 6 AND 8
  4. VANCOMYCIN [Concomitant]
     Indication: CLOSTRIDIAL INFECTION
     Route: 048

REACTIONS (1)
  - BONE MARROW NECROSIS [None]
